FAERS Safety Report 14223456 (Version 1)
Quarter: 2017Q4

REPORT INFORMATION
  Report Type: Spontaneous
  Country: IN (occurrence: IN)
  Receive Date: 20171124
  Receipt Date: 20171124
  Transmission Date: 20180321
  Serious: Yes (Death)
  Sender: FDA-Public Use
  Company Number: PHHY2017IN173294

PATIENT
  Sex: Male

DRUGS (1)
  1. VOTRIENT [Suspect]
     Active Substance: PAZOPANIB HYDROCHLORIDE
     Indication: ANAPLASTIC LYMPHOMA KINASE GENE MUTATION
     Dosage: 400 MG, QD
     Route: 048
     Dates: start: 20171014

REACTIONS (2)
  - Product use in unapproved indication [Unknown]
  - Death [Fatal]

NARRATIVE: CASE EVENT DATE: 20171014
